FAERS Safety Report 7342081-1 (Version None)
Quarter: 2011Q1

REPORT INFORMATION
  Report Type: 
  Country: None (occurrence: None)
  Receive Date: 20110309
  Receipt Date: 20110301
  Transmission Date: 20110831
  Serious: Yes (Death, Other)
  Sender: FDA-Public Use
  Company Number: JP-AMGEN-KDC437222

PATIENT
  Age: 67 Year
  Sex: Male
  Weight: 65 kg

DRUGS (11)
  1. PURSENNID [Concomitant]
     Route: 048
  2. PANITUMUMAB [Suspect]
     Indication: COLORECTAL CANCER
     Dosage: 6 MG, Q2WK
     Route: 041
     Dates: start: 20100816, end: 20100921
  3. IRINOTECAN HYDROCHLORIDE [Concomitant]
     Indication: COLORECTAL CANCER
     Route: 041
     Dates: start: 20100816, end: 20100921
  4. PANITUMUMAB [Suspect]
     Dosage: 6 MG/KG, Q2WK
     Dates: start: 20100907, end: 20100921
  5. FLUOROURACIL [Concomitant]
     Route: 041
     Dates: start: 20100816, end: 20100921
  6. CALCIUM LEVOFOLINATE [Concomitant]
     Indication: COLORECTAL CANCER
     Dosage: 300 MG, Q2WK
     Route: 041
     Dates: start: 20100816, end: 20100921
  7. ANTIHISTAMINES [Concomitant]
     Indication: PROPHYLAXIS
     Route: 065
  8. GASTER D [Concomitant]
     Route: 048
  9. MAGMITT [Concomitant]
     Route: 048
  10. FLUOROURACIL [Concomitant]
     Indication: COLORECTAL CANCER
     Route: 040
     Dates: start: 20100816, end: 20100921
  11. CORTICOSTEROIDS [Concomitant]
     Indication: PROPHYLAXIS
     Route: 065

REACTIONS (4)
  - CONJUNCTIVITIS [None]
  - DERMATITIS ACNEIFORM [None]
  - BLEPHARITIS [None]
  - COLORECTAL CANCER [None]
